FAERS Safety Report 9218191 (Version 1)
Quarter: 2013Q2

REPORT INFORMATION
  Report Type: Spontaneous
  Country: CH (occurrence: CH)
  Receive Date: 20130408
  Receipt Date: 20130408
  Transmission Date: 20140414
  Serious: Yes (Other)
  Sender: FDA-Public Use
  Company Number: PHHY2013CH033023

PATIENT
  Sex: Female

DRUGS (2)
  1. AZITHROMYCIN [Suspect]
     Indication: PYREXIA
     Route: 048
     Dates: start: 20130401
  2. PLAVIX [Concomitant]

REACTIONS (3)
  - Hallucination [Unknown]
  - Anxiety [Unknown]
  - Insomnia [Unknown]
